FAERS Safety Report 4481386-9 (Version None)
Quarter: 2004Q4

REPORT INFORMATION
  Report Type: 
  Country: None (occurrence: None)
  Receive Date: 20041021
  Receipt Date: 20041014
  Transmission Date: 20050328
  Serious: Yes (Other)
  Sender: FDA-Public Use
  Company Number: PHEH2004US11102

PATIENT
  Sex: Male

DRUGS (2)
  1. RITALIN [Suspect]
     Dosage: 20 MG, TID
     Route: 048
  2. PAXIL [Suspect]
     Dosage: 25 MG, UNK
     Route: 048

REACTIONS (1)
  - AGGRESSION [None]
